FAERS Safety Report 5857205-2 (Version None)
Quarter: 2008Q3

REPORT INFORMATION
  Report Type: 
  Country: None (occurrence: None)
  Receive Date: 20080821
  Receipt Date: 20080805
  Transmission Date: 20090109
  Serious: Yes (Death)
  Sender: FDA-Public Use
  Company Number: 2008BI015096

PATIENT
  Sex: Male

DRUGS (1)
  1. ZEVALIN [Suspect]
     Indication: DRUG USE FOR UNKNOWN INDICATION
     Dosage: 4 MCI; IV
     Route: 042
     Dates: start: 20050331

REACTIONS (1)
  - ACUTE MYELOID LEUKAEMIA [None]
